FAERS Safety Report 4679722-3 (Version None)
Quarter: 2005Q2

REPORT INFORMATION
  Report Type: 
  Country: None (occurrence: None)
  Receive Date: 20050531
  Receipt Date: 20050519
  Transmission Date: 20051028
  Serious: Yes (Other)
  Sender: FDA-Public Use
  Company Number: 2005-04-1568

PATIENT
  Sex: Female

DRUGS (1)
  1. PROVENTIL-HFA [Suspect]
     Dosage: ORAL AER INH
     Route: 055

REACTIONS (6)
  - CEREBROVASCULAR ACCIDENT [None]
  - DRUG INEFFECTIVE [None]
  - HEADACHE [None]
  - PHARMACEUTICAL PRODUCT COMPLAINT [None]
  - PHARYNGEAL OEDEMA [None]
  - THROAT IRRITATION [None]
